FAERS Safety Report 8936676 (Version 1)
Quarter: 2012Q4

REPORT INFORMATION
  Report Type: 
  Country: ES (occurrence: ES)
  Receive Date: 20121130
  Receipt Date: 20121130
  Transmission Date: 20130627
  Serious: Yes (Hospitalization)
  Sender: FDA-Public Use
  Company Number: ES-ROCHE-1159993

PATIENT
  Age: 54 Year
  Sex: Female

DRUGS (3)
  1. VALIUM [Suspect]
     Indication: PRODUCT USED FOR UNKNOWN INDICATION
     Route: 042
     Dates: start: 20120817
  2. DIAZEPAM [Interacting]
     Indication: PRODUCT USED FOR UNKNOWN INDICATION
     Route: 048
     Dates: start: 20120819, end: 20120820
  3. LORAZEPAM [Interacting]
     Indication: PRODUCT USED FOR UNKNOWN INDICATION
     Dosage: Drug reported as Lorazepam Cinfa
     Route: 048
     Dates: start: 20120819, end: 20120820

REACTIONS (2)
  - Toxicity to various agents [Recovered/Resolved]
  - Drug interaction [Unknown]
